FAERS Safety Report 15768794 (Version 1)
Quarter: 2018Q4

REPORT INFORMATION
  Report Type: Spontaneous
  Country: US (occurrence: US)
  Receive Date: 20181228
  Receipt Date: 20181228
  Transmission Date: 20190205
  Serious: No
  Sender: FDA-Public Use
  Company Number: US-DRREDDYS-USA/USA/18/0103006

PATIENT
  Age: 29 Year
  Sex: Male
  Weight: 83.4 kg

DRUGS (1)
  1. NICOTINE. [Suspect]
     Active Substance: NICOTINE
     Indication: SMOKING CESSATION THERAPY
     Route: 062

REACTIONS (5)
  - Overdose [Unknown]
  - Product complaint [Unknown]
  - Drug ineffective [Unknown]
  - Incorrect dose administered [Unknown]
  - Treatment noncompliance [Unknown]
